FAERS Safety Report 10957294 (Version 1)
Quarter: 2015Q1

REPORT INFORMATION
  Report Type: Spontaneous
  Country: US (occurrence: US)
  Receive Date: 20150326
  Receipt Date: 20150326
  Transmission Date: 20150721
  Serious: Yes (Other)
  Sender: FDA-Public Use
  Company Number: US-SA-2014SA175626

PATIENT
  Age: 38 Year
  Sex: Female

DRUGS (1)
  1. AUBAGIO [Suspect]
     Active Substance: TERIFLUNOMIDE
     Indication: PRODUCT USED FOR UNKNOWN INDICATION
     Route: 065
     Dates: start: 201210

REACTIONS (4)
  - Alopecia [Recovered/Resolved]
  - Vision blurred [Unknown]
  - Multiple sclerosis relapse [Unknown]
  - Pain in extremity [Unknown]

NARRATIVE: CASE EVENT DATE: 201304
